FAERS Safety Report 8262837-0 (Version None)
Quarter: 2012Q2

REPORT INFORMATION
  Report Type: 
  Country: None (occurrence: None)
  Receive Date: 20120405
  Receipt Date: 20120330
  Transmission Date: 20120825
  Serious: Yes (Hospitalization)
  Sender: FDA-Public Use
  Company Number: US-GLAXOSMITHKLINE-A0814922A

PATIENT
  Age: 59 Year
  Sex: Male
  Weight: 93.6 kg

DRUGS (7)
  1. AVANDIA [Suspect]
     Indication: DIABETES MELLITUS
     Dosage: 8MG PER DAY
     Route: 048
     Dates: start: 20040224, end: 20070213
  2. LIPITOR [Concomitant]
  3. NORVASC [Concomitant]
  4. METOPROLOL SUCCINATE [Concomitant]
  5. GLYBURIDE [Concomitant]
  6. AMLODIPINE [Concomitant]
  7. CATAPRES [Concomitant]

REACTIONS (3)
  - LACUNAR INFARCTION [None]
  - CEREBROVASCULAR ACCIDENT [None]
  - TRANSIENT ISCHAEMIC ATTACK [None]
